FAERS Safety Report 21232764 (Version 1)
Quarter: 2022Q3

REPORT INFORMATION
  Report Type: Spontaneous
  Country: CA (occurrence: CA)
  Receive Date: 20220819
  Receipt Date: 20220819
  Transmission Date: 20221027
  Serious: Yes (Death, Life-Threatening, Hospitalization, Other)
  Sender: FDA-Public Use
  Company Number: CA-009507513-2008CAN008316

PATIENT
  Age: 50 Year
  Sex: Male

DRUGS (10)
  1. LISINOPRIL [Suspect]
     Active Substance: LISINOPRIL
     Indication: Product used for unknown indication
     Dosage: UNK
     Route: 065
  2. AMLODIPINE [Suspect]
     Active Substance: AMLODIPINE BESYLATE
     Indication: Product used for unknown indication
     Dosage: UNK
     Route: 065
  3. DIPHENHYDRAMINE [Suspect]
     Active Substance: DIPHENHYDRAMINE
     Indication: Angioedema
     Route: 065
  4. TOLVAPTAN [Suspect]
     Active Substance: TOLVAPTAN
     Indication: Product used for unknown indication
     Route: 065
  5. EPINEPHRINE [Suspect]
     Active Substance: EPINEPHRINE
     Indication: Angioedema
     Route: 065
  6. VENLAFAXINE HYDROCHLORIDE [Suspect]
     Active Substance: VENLAFAXINE HYDROCHLORIDE
     Indication: Congenital cystic kidney disease
     Dosage: UNK
     Route: 065
  7. RANITIDINE [Suspect]
     Active Substance: RANITIDINE
     Indication: Angioedema
     Route: 065
  8. ALLOPURINOL [Suspect]
     Active Substance: ALLOPURINOL
     Indication: Congenital cystic kidney disease
     Dosage: UNK
     Route: 065
  9. LISINOPRIL [Suspect]
     Active Substance: LISINOPRIL
     Indication: Congenital cystic kidney disease
     Route: 048
  10. TOLVAPTAN [Concomitant]
     Active Substance: TOLVAPTAN
     Indication: Congenital cystic kidney disease
     Dosage: UNK
     Route: 065

REACTIONS (7)
  - Death [Fatal]
  - Dysarthria [Fatal]
  - Drug ineffective [Fatal]
  - Angioedema [Fatal]
  - Eyelid oedema [Fatal]
  - Face oedema [Fatal]
  - Tongue oedema [Fatal]
